FAERS Safety Report 19172218 (Version 1)
Quarter: 2021Q2

REPORT INFORMATION
  Report Type: Spontaneous
  Country: US (occurrence: US)
  Receive Date: 20210422
  Receipt Date: 20210422
  Transmission Date: 20210717
  Serious: Yes (Other)
  Sender: FDA-Public Use
  Company Number: None

PATIENT
  Age: 50 Year
  Sex: Female

DRUGS (1)
  1. SUBOXONE [Suspect]
     Active Substance: BUPRENORPHINE HYDROCHLORIDE\NALOXONE HYDROCHLORIDE
     Indication: SUBSTANCE USE DISORDER
     Dosage: ?          OTHER DOSE:8/2 MG;?
     Route: 060
     Dates: start: 20210103, end: 20210406

REACTIONS (3)
  - Vomiting [None]
  - Nausea [None]
  - Oral mucosal blistering [None]

NARRATIVE: CASE EVENT DATE: 20210103
